FAERS Safety Report 8276908-6 (Version None)
Quarter: 2012Q2

REPORT INFORMATION
  Report Type: 
  Country: None (occurrence: None)
  Receive Date: 20120412
  Receipt Date: 20120403
  Transmission Date: 20120825
  Serious: Yes (Hospitalization)
  Sender: FDA-Public Use
  Company Number: US-ACTELION-A-US2012-63138

PATIENT

DRUGS (1)
  1. TRACLEER [Suspect]
     Indication: PULMONARY ARTERIAL HYPERTENSION
     Dosage: UNK
     Route: 048
     Dates: start: 20120222

REACTIONS (6)
  - CEREBROVASCULAR ACCIDENT [None]
  - ASTHENIA [None]
  - TOE OPERATION [None]
  - SEPSIS [None]
  - PAIN IN EXTREMITY [None]
  - KNEE OPERATION [None]
